FAERS Safety Report 11409357 (Version 1)
Quarter: 2015Q3

REPORT INFORMATION
  Report Type: Spontaneous
  Country: US (occurrence: None)
  Receive Date: 20150820
  Receipt Date: 20150820
  Transmission Date: 20151125
  Serious: Yes (Other)
  Sender: FDA-Public Use
  Company Number: US-002347N

PATIENT
  Sex: Female
  Weight: 81.65 kg

DRUGS (9)
  1. XANAX [Concomitant]
     Active Substance: ALPRAZOLAM
  2. PROZAC [Concomitant]
     Active Substance: FLUOXETINE HYDROCHLORIDE
  3. CALCIUM [Concomitant]
     Active Substance: CALCIUM
  4. ARMOUR THYROID [Concomitant]
     Active Substance: THYROID, PORCINE\THYROID, UNSPECIFIED
  5. VITAMIN D [Concomitant]
     Active Substance: CHOLECALCIFEROL
  6. HYDROCODONE [Concomitant]
     Active Substance: HYDROCODONE
  7. CALCITRIOL. [Concomitant]
     Active Substance: CALCITRIOL
  8. PARATHYROID HORMONE [Suspect]
     Active Substance: PARATHYROID HORMONE
     Indication: HYPOPARATHYROIDISM
     Route: 058
     Dates: start: 20150729, end: 201508
  9. PROTONIX /00661201/ [Concomitant]
     Active Substance: OMEPRAZOLE

REACTIONS (5)
  - Muscle spasms [None]
  - Thyroid cancer recurrent [None]
  - Pain in extremity [None]
  - Arthralgia [None]
  - Headache [None]

NARRATIVE: CASE EVENT DATE: 2015
